FAERS Safety Report 23409956 (Version 1)
Quarter: 2024Q1

REPORT INFORMATION
  Report Type: Report from Study
  Country: FR (occurrence: FR)
  Receive Date: 20240117
  Receipt Date: 20240117
  Transmission Date: 20240410
  Serious: Yes (Other)
  Sender: FDA-Public Use
  Company Number: FR-MIRATI-MT2024PM05751

PATIENT
  Age: 69 Year
  Sex: Female

DRUGS (8)
  1. KRAZATI [Suspect]
     Active Substance: ADAGRASIB
     Indication: Lung neoplasm
     Dosage: 600 MG, BID
     Dates: start: 20231127, end: 20231218
  2. KRAZATI [Suspect]
     Active Substance: ADAGRASIB
     Dosage: 400 MG, BID
     Dates: start: 20231227
  3. INNOHEP [Concomitant]
     Active Substance: TINZAPARIN SODIUM
  4. XANAX [Concomitant]
     Active Substance: ALPRAZOLAM
     Dosage: 0.5 0-0-1 1/2 TAB
  5. PANTOPRAZOLE [Concomitant]
     Active Substance: PANTOPRAZOLE
     Dosage: 20 MG
  6. MIANSERIN [Concomitant]
     Active Substance: MIANSERIN
     Dosage: 30 MG
  7. ZOPICLONE [Concomitant]
     Active Substance: ZOPICLONE
     Dosage: 0.5 TAB 0-0-1
  8. Solupred [Concomitant]
     Dosage: 60 MG

REACTIONS (7)
  - Hepatic cytolysis [Unknown]
  - Haemorrhage [Unknown]
  - Muscle spasms [Recovered/Resolved]
  - Decreased appetite [Unknown]
  - Constipation [Unknown]
  - Vomiting [Unknown]
  - Nausea [Unknown]

NARRATIVE: CASE EVENT DATE: 20231127
